FAERS Safety Report 8836554 (Version 1)
Quarter: 2012Q4

REPORT INFORMATION
  Report Type: Spontaneous
  Country: CA (occurrence: None)
  Receive Date: 20121009
  Receipt Date: 20121009
  Transmission Date: 20130627
  Serious: Yes (Hospitalization, Other)
  Sender: FDA-Public Use
  Company Number: 2012/149

PATIENT
  Age: 14 Year
  Sex: Female

DRUGS (1)
  1. VALPROATE [Suspect]
     Indication: FEBRILE SEIZURE

REACTIONS (6)
  - Pancreatitis acute [None]
  - Blood cholesterol increased [None]
  - Diabetes mellitus [None]
  - Anti-GAD antibody positive [None]
  - Hypertriglyceridaemia [None]
  - Xanthoma [None]
